FAERS Safety Report 13162617 (Version 2)
Quarter: 2017Q1

REPORT INFORMATION
  Report Type: Spontaneous
  Country: US (occurrence: US)
  Receive Date: 20170130
  Receipt Date: 20170307
  Transmission Date: 20170428
  Serious: Yes (Other)
  Sender: FDA-Public Use
  Company Number: US-PFIZER INC-2017038500

PATIENT
  Age: 73 Year
  Sex: Male
  Weight: 116.12 kg

DRUGS (4)
  1. BOSULIF [Suspect]
     Active Substance: BOSUTINIB MONOHYDRATE
     Indication: LEUKAEMIA
     Dosage: 100 MG, 2X/DAY
     Dates: start: 20161101
  2. BOSULIF [Suspect]
     Active Substance: BOSUTINIB MONOHYDRATE
     Indication: CHRONIC MYELOID LEUKAEMIA
     Dosage: 100 MG, TABLET, 3 TIMES A DAY
  3. ELIQUIS [Concomitant]
     Active Substance: APIXABAN
     Indication: BLOOD DISORDER
     Dosage: 5 MG, UNK
     Dates: start: 20141115
  4. BRILINTA [Concomitant]
     Active Substance: TICAGRELOR
     Indication: BLOOD DISORDER
     Dosage: UNK
     Dates: start: 20150107

REACTIONS (2)
  - Angina pectoris [Not Recovered/Not Resolved]
  - Condition aggravated [Unknown]
